FAERS Safety Report 11926462 (Version 7)
Quarter: 2016Q4

REPORT INFORMATION
  Report Type: Spontaneous
  Country: US (occurrence: US)
  Receive Date: 20160119
  Receipt Date: 20161222
  Transmission Date: 20170206
  Serious: Yes (Life-Threatening, Congenital Anomaly, Other)
  Sender: FDA-Public Use
  Company Number: PHEH2016US001408

PATIENT
  Sex: Male

DRUGS (2)
  1. ZOFRAN ODT [Suspect]
     Active Substance: ONDANSETRON HYDROCHLORIDE
     Indication: FOETAL EXPOSURE DURING PREGNANCY
     Route: 064
  2. ONDANSETRON [Suspect]
     Active Substance: ONDANSETRON
     Indication: FOETAL EXPOSURE DURING PREGNANCY
     Dosage: MOTHER DOSE: 4 MG, QD
     Route: 064

REACTIONS (19)
  - Heart disease congenital [Unknown]
  - Laryngeal cleft [Unknown]
  - Pulmonary malformation [Unknown]
  - Emotional distress [Unknown]
  - Abdominal distension [Unknown]
  - Dacryostenosis congenital [Unknown]
  - Infantile apnoea [Unknown]
  - Seizure [Unknown]
  - Dyspnoea [Unknown]
  - Anxiety [Unknown]
  - Premature baby [Unknown]
  - Congenital anomaly [Unknown]
  - Cleft palate [Unknown]
  - Injury [Unknown]
  - Hypersensitivity [Unknown]
  - Foetal exposure during pregnancy [Unknown]
  - Anhedonia [Unknown]
  - Respiratory disorder [Unknown]
  - Pain [Unknown]
